FAERS Safety Report 5966243-0 (Version None)
Quarter: 2008Q4

REPORT INFORMATION
  Report Type: 
  Country: None (occurrence: None)
  Receive Date: 20081119
  Receipt Date: 20080902
  Transmission Date: 20090506
  Serious: No
  Sender: FDA-Public Use
  Company Number: WAES 0809USA00357

PATIENT
  Age: 53 Year
  Sex: Female

DRUGS (8)
  1. JANUVIA [Suspect]
     Indication: DIABETES MELLITUS
     Dosage: 100 MG/DAILY/PO
     Route: 048
     Dates: start: 20080702, end: 20080722
  2. ACTOS [Concomitant]
  3. DARVOCET-N 100 [Concomitant]
  4. LEVOXYL [Concomitant]
  5. TOPAMAX [Concomitant]
  6. CLONIDINE [Concomitant]
  7. NAPROXEN [Concomitant]
  8. VITAMINS [Concomitant]

REACTIONS (5)
  - DYSPNOEA [None]
  - LIVER DISORDER [None]
  - RASH [None]
  - SKIN DISORDER [None]
  - SUFFOCATION FEELING [None]
